FAERS Safety Report 4337540-X (Version None)
Quarter: 2004Q2

REPORT INFORMATION
  Report Type: 
  Country: None (occurrence: None)
  Receive Date: 20040413
  Receipt Date: 20040401
  Transmission Date: 20050107
  Serious: Yes (Hospitalization)
  Sender: FDA-Public Use
  Company Number: FR-GLAXOSMITHKLINE-B0328904A

PATIENT
  Age: 34 Year
  Sex: Female
  Weight: 50 kg

DRUGS (18)
  1. DEROXAT [Suspect]
     Indication: ANXIETY
     Dosage: 20MG PER DAY
     Route: 048
     Dates: start: 20040205, end: 20040318
  2. DEROXAT [Suspect]
     Indication: DEPRESSION
     Dosage: 20MG PER DAY
     Route: 048
     Dates: start: 20040205, end: 20040318
  3. DALACINE [Suspect]
     Dosage: 400MG THREE TIMES PER DAY
     Route: 048
     Dates: start: 20040301, end: 20040308
  4. TRACLEER [Suspect]
     Dosage: 62.5MG TWICE PER DAY
     Route: 048
     Dates: start: 20040306, end: 20040317
  5. FLODIL LP [Suspect]
     Dosage: 5MG PER DAY
     Route: 048
     Dates: start: 20040306, end: 20040318
  6. OMEPRAZOLE [Suspect]
     Dosage: 20MG PER DAY
     Route: 048
     Dates: start: 20040205, end: 20040318
  7. ILOMEDINE [Concomitant]
     Route: 042
     Dates: start: 20040205, end: 20040308
  8. TRANXENE [Concomitant]
     Indication: ANXIETY
  9. TRANXENE [Concomitant]
     Indication: DEPRESSION
  10. NICORETTE PATCH [Concomitant]
     Route: 062
  11. CIFLOX [Concomitant]
  12. MORPHINE [Concomitant]
  13. ACTISKENAN [Concomitant]
  14. KARDEGIC [Concomitant]
  15. MICROVAL [Concomitant]
  16. FORLAX [Concomitant]
  17. ZOLPIDEM TARTRATE [Concomitant]
  18. PYOSTACINE [Concomitant]

REACTIONS (8)
  - DYSPNOEA [None]
  - FACE OEDEMA [None]
  - PERICARDITIS [None]
  - PLEURAL EFFUSION [None]
  - POLYSEROSITIS [None]
  - PULMONARY OEDEMA [None]
  - SWELLING FACE [None]
  - WEIGHT INCREASED [None]
